FAERS Safety Report 5720355-5 (Version None)
Quarter: 2008Q2

REPORT INFORMATION
  Report Type: 
  Country: None (occurrence: None)
  Receive Date: 20080423
  Receipt Date: 20070706
  Transmission Date: 20081010
  Serious: Yes (Other)
  Sender: FDA-Public Use
  Company Number: 242428

PATIENT
  Age: 66 Year
  Sex: Female
  Weight: 103.4 kg

DRUGS (2)
  1. AVASTIN [Suspect]
     Indication: COLORECTAL CANCER METASTATIC
     Dosage: 500 MG, QOW, INTRAVENOUS
     Route: 042
     Dates: start: 20060502
  2. COUMADIN [Concomitant]

REACTIONS (2)
  - HYPERTENSION [None]
  - RECTAL HAEMORRHAGE [None]
